FAERS Safety Report 10246683 (Version 4)
Quarter: 2016Q2

REPORT INFORMATION
  Report Type: Spontaneous
  Country: FR (occurrence: FR)
  Receive Date: 20140619
  Receipt Date: 20160607
  Transmission Date: 20160815
  Serious: Yes (Hospitalization)
  Sender: FDA-Public Use
  Company Number: FR-ROCHE-1420103

PATIENT
  Age: 68 Year
  Sex: Female

DRUGS (15)
  1. RABEPRAZOLE [Concomitant]
     Active Substance: RABEPRAZOLE
     Route: 065
  2. CACIT (FRANCE) [Concomitant]
     Dosage: D3 500MG 2 DF EVERY MORNINGS
     Route: 065
  3. TERIPARATIDE [Concomitant]
     Active Substance: TERIPARATIDE
  4. PREDNISONE. [Suspect]
     Active Substance: PREDNISONE
     Indication: POLYARTERITIS NODOSA
     Route: 048
     Dates: start: 2008
  5. FORSTEO [Concomitant]
     Active Substance: TERIPARATIDE
     Route: 065
  6. FOLIC ACID. [Concomitant]
     Active Substance: FOLIC ACID
     Dosage: 5 MG PER WEEK
     Route: 065
  7. METHOTREXATE [Concomitant]
     Active Substance: METHOTREXATE
     Route: 065
  8. METHOTREXATE [Concomitant]
     Active Substance: METHOTREXATE
     Route: 065
  9. MABTHERA [Suspect]
     Active Substance: RITUXIMAB
     Indication: POLYARTERITIS NODOSA
     Dosage: D1 AND D15
     Route: 042
     Dates: start: 201310
  10. PREDNISONE. [Suspect]
     Active Substance: PREDNISONE
     Dosage: IN THE MORNING
     Route: 048
  11. FLUINDIONE [Concomitant]
     Active Substance: FLUINDIONE
     Route: 065
  12. INSULIN [Concomitant]
     Active Substance: INSULIN NOS
     Route: 065
  13. MABTHERA [Suspect]
     Active Substance: RITUXIMAB
     Route: 042
     Dates: start: 20140507, end: 201405
  14. NOVATREX NOS [Suspect]
     Active Substance: AZITHROMYCIN OR METHOTREXATE SODIUM
     Indication: POLYARTERITIS NODOSA
     Dosage: 2 DF IN MORNIG AND 2 DF IN EVENING PER WEEK
     Route: 048
  15. IMETH [Suspect]
     Active Substance: METHOTREXATE SODIUM
     Indication: PRODUCT USED FOR UNKNOWN INDICATION
     Dosage: 2.5 MG TABLET
     Route: 048
     Dates: start: 20140326

REACTIONS (4)
  - Bronchitis [Recovered/Resolved]
  - Enterobacter sepsis [Recovered/Resolved]
  - Condition aggravated [Not Recovered/Not Resolved]
  - Secondary immunodeficiency [Recovered/Resolved with Sequelae]

NARRATIVE: CASE EVENT DATE: 201402
